FAERS Safety Report 6005547-2 (Version None)
Quarter: 2008Q4

REPORT INFORMATION
  Report Type: 
  Country: None (occurrence: None)
  Receive Date: 20081215
  Receipt Date: 20081209
  Transmission Date: 20090506
  Serious: Yes (Other)
  Sender: FDA-Public Use
  Company Number: 2008JP005709

PATIENT
  Age: 9 Month

DRUGS (1)
  1. PROTOPIC [Suspect]
     Dosage: 0.03%, TOPICAL
     Route: 061

REACTIONS (1)
  - LYMPHOMA [None]
